FAERS Safety Report 17956762 (Version 1)
Quarter: 2020Q2

REPORT INFORMATION
  Report Type: Spontaneous
  Country: US (occurrence: US)
  Receive Date: 20200628
  Receipt Date: 20200628
  Transmission Date: 20200714
  Serious: Yes (Hospitalization, Other)
  Sender: FDA-Public Use
  Company Number: None

PATIENT
  Age: 79 Year
  Sex: Male
  Weight: 72 kg

DRUGS (2)
  1. NORTHERA [Suspect]
     Active Substance: DROXIDOPA
     Indication: PARKINSON^S DISEASE
     Route: 048
     Dates: start: 20181218
  2. NORTHERN DROXIDOPA [Concomitant]
     Dates: start: 20181218, end: 20200628

REACTIONS (4)
  - Seizure [None]
  - Fall [None]
  - Dizziness [None]
  - Hallucination [None]

NARRATIVE: CASE EVENT DATE: 20200626
